FAERS Safety Report 5192273-5 (Version None)
Quarter: 2006Q4

REPORT INFORMATION
  Report Type: 
  Country: None (occurrence: None)
  Receive Date: 20061220
  Receipt Date: 20061218
  Transmission Date: 20070319
  Serious: Yes (Death, Life-Threatening, Hospitalization)
  Sender: FDA-Public Use
  Company Number: CLOF-10381

PATIENT
  Age: 70 Year
  Sex: Male

DRUGS (5)
  1. CLOFARABINE [Suspect]
     Indication: MYELOID LEUKAEMIA
     Dosage: 80  MG QD X 5 IV
     Route: 042
     Dates: start: 20061021, end: 20061025
  2. CYTARABINE [Suspect]
     Indication: MYELOID LEUKAEMIA
     Dosage: 1940 MG QD X 5 IV
     Route: 042
     Dates: start: 20061021, end: 20061025
  3. LEVAQUIN [Concomitant]
  4. ACYCLOVIR [Concomitant]
  5. VERSED [Concomitant]

REACTIONS (10)
  - ACUTE MYELOID LEUKAEMIA [None]
  - BLOOD CULTURE POSITIVE [None]
  - FACE INJURY [None]
  - FALL [None]
  - FEBRILE NEUTROPENIA [None]
  - HYPOTENSION [None]
  - LACERATION [None]
  - SEPSIS [None]
  - STAPHYLOCOCCAL INFECTION [None]
  - SYNCOPE [None]
